FAERS Safety Report 19294243 (Version 1)
Quarter: 2021Q2

REPORT INFORMATION
  Report Type: Spontaneous
  Country: US (occurrence: US)
  Receive Date: 20210524
  Receipt Date: 20210524
  Transmission Date: 20210717
  Serious: Yes (Death)
  Sender: FDA-Public Use
  Company Number: None

PATIENT
  Age: 81 Year
  Sex: Male
  Weight: 58.5 kg

DRUGS (13)
  1. CIALIS [Concomitant]
     Active Substance: TADALAFIL
  2. LIDOCAINE?PRILOCAINE 2.5?2.5% [Concomitant]
  3. NYSTATIN CREAM [Concomitant]
     Active Substance: NYSTATIN
  4. IBRANCE [Concomitant]
     Active Substance: PALBOCICLIB
  5. MARINOL 5MG [Concomitant]
  6. TOVIAZ [Concomitant]
     Active Substance: FESOTERODINE FUMARATE
  7. OMEPRAZOLE 20MG [Concomitant]
     Active Substance: OMEPRAZOLE
  8. CAPECITABINE. [Suspect]
     Active Substance: CAPECITABINE
     Indication: MALIGNANT NIPPLE NEOPLASM MALE
     Dosage: ?          OTHER FREQUENCY:BID X14DAYS, 7 OFF;?
     Route: 048
     Dates: start: 20210504, end: 20210516
  9. DIFLUCAN 100MG, 200MG [Concomitant]
  10. NEURONTIN 300MG [Concomitant]
  11. VALTREX 1GM [Concomitant]
  12. DEXAMETHASONE 4MG [Concomitant]
     Active Substance: DEXAMETHASONE
  13. TAMSULOSIN [Concomitant]
     Active Substance: TAMSULOSIN

REACTIONS (1)
  - Death [None]

NARRATIVE: CASE EVENT DATE: 20210516
